FAERS Safety Report 4295115-5 (Version None)
Quarter: 2004Q1

REPORT INFORMATION
  Report Type: 
  Country: None (occurrence: None)
  Receive Date: 20040211
  Receipt Date: 20040123
  Transmission Date: 20041129
  Serious: Yes (Death, Life-Threatening, Hospitalization)
  Sender: FDA-Public Use
  Company Number: US_001153276

PATIENT
  Age: 75 Year
  Sex: Male
  Weight: 53 kg

DRUGS (10)
  1. GEMZAR [Suspect]
     Indication: NON-SMALL CELL LUNG CANCER
     Dosage: 1500 MG
     Dates: start: 20001023, end: 20001023
  2. SODIUM CHLORIDE 0.9% [Concomitant]
  3. TRANSAMIN (TRANEXAMIC ACID) [Concomitant]
  4. NAUZELIN (DOMPERIDONE) [Concomitant]
  5. LAXOBERON (SODIUM PICOSULFATE) [Concomitant]
  6. ADONA (CARBAZOCHROME SODIUM SULFONATE) [Concomitant]
  7. MS CONTIN [Concomitant]
  8. STEIROCALL [Concomitant]
  9. ZOFRAN [Concomitant]
  10. ALENDRONATE SODIUM [Concomitant]

REACTIONS (12)
  - ACUTE RESPIRATORY DISTRESS SYNDROME [None]
  - ANURIA [None]
  - BLOOD LACTATE DEHYDROGENASE INCREASED [None]
  - DEPRESSED LEVEL OF CONSCIOUSNESS [None]
  - DISSEMINATED INTRAVASCULAR COAGULATION [None]
  - GENERAL PHYSICAL HEALTH DETERIORATION [None]
  - INFECTION IN AN IMMUNOCOMPROMISED HOST [None]
  - LUNG INFILTRATION [None]
  - PNEUMONIA [None]
  - PNEUMONIA BACTERIAL [None]
  - PNEUMONITIS [None]
  - RESPIRATORY FAILURE [None]
